FAERS Safety Report 8817597 (Version 3)
Quarter: 2014Q1

REPORT INFORMATION
  Report Type: Spontaneous
  Country: US (occurrence: US)
  Receive Date: 20121001
  Receipt Date: 20140331
  Transmission Date: 20141002
  Serious: Yes (Hospitalization)
  Sender: FDA-Public Use
  Company Number: US-BAYER-2012-099772

PATIENT
  Age: 21 Year
  Sex: Female
  Weight: 73 kg

DRUGS (3)
  1. YAZ [Suspect]
     Dosage: UNK
     Dates: start: 20071019, end: 2010
  2. NEXIUM [Concomitant]
     Dosage: 40 MG, UNK
     Dates: start: 20100628
  3. CEPHALEXIN [Concomitant]
     Dosage: 500 MG, UNK
     Dates: start: 20100711

REACTIONS (10)
  - Biliary colic [None]
  - Pain [None]
  - Injury [None]
  - General physical health deterioration [None]
  - Emotional distress [None]
  - Anxiety [None]
  - Pain [None]
  - Anhedonia [None]
  - Procedural complication [None]
  - Gallbladder disorder [None]
